FAERS Safety Report 4380505-2 (Version None)
Quarter: 2004Q2

REPORT INFORMATION
  Report Type: 
  Country: None (occurrence: None)
  Receive Date: 20040614
  Receipt Date: 20040121
  Transmission Date: 20050107
  Serious: Yes (Hospitalization)
  Sender: FDA-Public Use
  Company Number: WAES 0401USA01507

PATIENT
  Age: 39 Year
  Sex: Male

DRUGS (3)
  1. COZAAR [Suspect]
     Dosage: PO
     Route: 048
  2. THALOMID [Suspect]
     Indication: MYELOFIBROSIS
     Dosage: 100 MG/DAILY/PO
     Route: 048
     Dates: start: 20030530, end: 20030613
  3. ADVIL [Suspect]

REACTIONS (1)
  - RENAL FAILURE ACUTE [None]
